FAERS Safety Report 9549235 (Version 2)
Quarter: 2013Q3

REPORT INFORMATION
  Report Type: Spontaneous
  Country: IE (occurrence: IE)
  Receive Date: 20130924
  Receipt Date: 20130924
  Transmission Date: 20140515
  Serious: Yes (Other)
  Sender: FDA-Public Use
  Company Number: IE-ACTELION-A-CH2013-85625

PATIENT
  Age: 1 Year
  Sex: Male
  Weight: 7.5 kg

DRUGS (19)
  1. TRACLEER [Suspect]
     Indication: PULMONARY HYPERTENSION
     Dosage: 7.5 MG, BID
     Route: 048
  2. ASPIRIN [Concomitant]
  3. CHLORAL HYDRATE [Concomitant]
  4. CHLOROTHIAZIDE [Concomitant]
  5. FUROSEMIDE [Concomitant]
  6. ZOTON [Concomitant]
  7. MORPHINE [Concomitant]
  8. SILDENAFIL [Concomitant]
  9. SODIUM CHLORIDE [Concomitant]
  10. SPIRONOLACTONE [Concomitant]
  11. CALCIUM [Concomitant]
  12. CLONIDINE [Concomitant]
  13. HEPARIN [Concomitant]
  14. IBUPROFEN [Concomitant]
  15. IPRATROPIUM [Concomitant]
  16. LACTULOSE [Concomitant]
  17. MAGNESIUM [Concomitant]
  18. PARACETAMOL [Concomitant]
  19. ALIMEMAZINE [Concomitant]

REACTIONS (1)
  - Impaired gastric emptying [Unknown]
